FAERS Safety Report 9099629 (Version 1)
Quarter: 2013Q1

REPORT INFORMATION
  Report Type: Spontaneous
  Country: MX (occurrence: MX)
  Receive Date: 20130214
  Receipt Date: 20130214
  Transmission Date: 20140127
  Serious: Yes (Other)
  Sender: FDA-Public Use
  Company Number: PHHY2013MX013062

PATIENT
  Age: 65 Year
  Sex: Male

DRUGS (5)
  1. DIOVAN [Suspect]
     Indication: HYPERTENSION
     Dosage: 80 MG, DAILY
     Route: 048
  2. ATORVASTATIN [Concomitant]
     Indication: BLOOD CHOLESTEROL
     Dosage: UNK
  3. ATORVASTATIN [Concomitant]
     Indication: BLOOD TRIGLYCERIDES
  4. DICLOXACILLIN [Concomitant]
     Dosage: UNK
  5. ACETAMINOPHEN [Concomitant]
     Indication: PLASMA VISCOSITY DECREASED
     Dosage: UNK
     Dates: start: 201202

REACTIONS (1)
  - Cardiac disorder [Recovered/Resolved]
